FAERS Safety Report 9803272 (Version 1)
Quarter: 2014Q1

REPORT INFORMATION
  Report Type: Not Available
  Country: GB (occurrence: GB)
  Receive Date: 20140108
  Receipt Date: 20140108
  Transmission Date: 20141002
  Serious: Yes (Life-Threatening, Hospitalization)
  Sender: FDA-Public Use
  Company Number: GB-ASTELLAS-2014EU000045

PATIENT
  Age: 16 Year
  Sex: Male

DRUGS (4)
  1. SOLIFENACIN [Suspect]
     Indication: INCONTINENCE
     Dosage: 5 MG, UNKNOWN/D
     Route: 048
     Dates: start: 20130228
  2. SOLIFENACIN [Suspect]
     Indication: OFF LABEL USE
  3. DUAC [Concomitant]
     Dosage: UNK
     Route: 061
  4. MOVICOL                            /01749801/ [Concomitant]
     Dosage: UNK
     Route: 048

REACTIONS (5)
  - Off label use [Unknown]
  - Neurogenic bowel [Recovered/Resolved with Sequelae]
  - Volvulus [Unknown]
  - Postoperative ileus [Unknown]
  - Intestinal obstruction [Recovered/Resolved with Sequelae]
